FAERS Safety Report 10966337 (Version 1)
Quarter: 2015Q1

REPORT INFORMATION
  Report Type: Spontaneous
  Country: US (occurrence: US)
  Receive Date: 20150330
  Receipt Date: 20150330
  Transmission Date: 20150721
  Serious: No
  Sender: FDA-Public Use
  Company Number: US-MYLANLABS-2014M1015252

PATIENT
  Age: 50 Year
  Sex: Male
  Weight: 99.77 kg

DRUGS (2)
  1. HYDROMORPHONE [Concomitant]
     Active Substance: HYDROMORPHONE
     Indication: BREAKTHROUGH PAIN
     Dosage: 4 MG, PRN
     Route: 048
  2. FENTANYL TRANSDERMAL SYSTEM [Suspect]
     Active Substance: FENTANYL
     Indication: ARTHRALGIA
     Dosage: 50 ?G, QH, CHANGES Q. 72 HOURS
     Route: 062
     Dates: start: 2011

REACTIONS (1)
  - False negative investigation result [Not Recovered/Not Resolved]

NARRATIVE: CASE EVENT DATE: 201405
